FAERS Safety Report 9240127 (Version 2)
Quarter: 2013Q2

REPORT INFORMATION
  Report Type: Report from Study
  Country: US (occurrence: US)
  Receive Date: 20130418
  Receipt Date: 20130523
  Transmission Date: 20140414
  Serious: Yes (Death, Hospitalization, Other)
  Sender: FDA-Public Use
  Company Number: US-ACTELION-A-US2013-79015

PATIENT
  Age: 62 Year
  Sex: Female

DRUGS (13)
  1. TRACLEER [Suspect]
     Indication: PULMONARY ARTERIAL HYPERTENSION
     Dosage: 62.5 MG, BID
     Route: 048
     Dates: end: 2013
  2. PLAVIX [Concomitant]
  3. ASA [Concomitant]
  4. CARDIZEM [Concomitant]
  5. LOPRESSOR [Concomitant]
  6. RANEXA [Concomitant]
  7. XANAX [Concomitant]
  8. LYRICA [Concomitant]
  9. ZOLOFT [Concomitant]
  10. RENVELA [Concomitant]
  11. PRILOSEC [Concomitant]
  12. SENSIPAR [Concomitant]
  13. VITAMIN B COMPLEX [Concomitant]

REACTIONS (16)
  - Acute pulmonary oedema [Fatal]
  - Cardio-respiratory arrest [Fatal]
  - Respiratory failure [Fatal]
  - Shock [Fatal]
  - Pulmonary oedema [Recovering/Resolving]
  - Cardiac valve disease [Unknown]
  - Supraventricular tachycardia [Recovering/Resolving]
  - Arterial stenosis [Recovering/Resolving]
  - Stent placement [Recovering/Resolving]
  - Angioplasty [Recovering/Resolving]
  - Hypoxia [Fatal]
  - Pericardial effusion [Unknown]
  - Dyspnoea [Recovering/Resolving]
  - Chest pain [Recovering/Resolving]
  - Cardiac failure congestive [Fatal]
  - Hypotension [Fatal]
